FAERS Safety Report 5013789-8 (Version None)
Quarter: 2006Q2

REPORT INFORMATION
  Report Type: 
  Country: None (occurrence: None)
  Receive Date: 20060525
  Receipt Date: 20060517
  Transmission Date: 20061013
  Serious: Yes (Hospitalization)
  Sender: FDA-Public Use
  Company Number: HQWYE382017MAY06

PATIENT
  Age: 34 Year
  Sex: Female

DRUGS (11)
  1. RAPAMUNE [Suspect]
     Indication: PROPHYLAXIS AGAINST TRANSPLANT REJECTION
     Dosage: 3 MG 1X PER 1 DAY, ORAL
     Route: 048
     Dates: start: 20041025
  2. MYCOPHENOLATE MOFETIL [Suspect]
     Indication: PROPHYLAXIS AGAINST TRANSPLANT REJECTION
     Dosage: 1000 MG 2X PER 1 DAY, ORAL
     Route: 048
     Dates: start: 20040428
  3. TOPRAL (SULTOPRIDE) [Concomitant]
  4. ASPRIN (ACETYLSALICYLIC ACID) [Concomitant]
  5. LIPITOR [Concomitant]
  6. MULTIVITAMINS, PLAIN (MULTIVITAMINS, PLAIN) [Concomitant]
  7. GALENIC/IRON/VITAMINS NOS/FOLIC ACID/ (FOLIC ACID/ IRON/VITAMINS NOS) [Concomitant]
  8. LOTENSIN [Concomitant]
  9. PROTONIX [Concomitant]
  10. LASIX [Concomitant]
  11. CORTICOSTEROID NOS (CORTICOSTEROID NOS) [Concomitant]

REACTIONS (6)
  - BACK PAIN [None]
  - BLOOD PRESSURE SYSTOLIC INCREASED [None]
  - COMPLICATIONS OF TRANSPLANT SURGERY [None]
  - PYELONEPHRITIS [None]
  - RESPIRATORY RATE INCREASED [None]
  - TACHYCARDIA [None]
